FAERS Safety Report 7642661-X (Version None)
Quarter: 2011Q3

REPORT INFORMATION
  Report Type: 
  Country: None (occurrence: None)
  Receive Date: 20110728
  Receipt Date: 20110727
  Transmission Date: 20111222
  Serious: No
  Sender: FDA-Public Use
  Company Number: US-PFIZER INC-2011082569

PATIENT
  Sex: Male
  Weight: 67.574 kg

DRUGS (9)
  1. PREDNISONE [Suspect]
     Dosage: UNK
     Dates: start: 20100101
  2. DILTIAZEM HYDROCHLORIDE [Suspect]
     Indication: ANTICOAGULANT THERAPY
     Dosage: UNK
     Dates: start: 20101201
  3. RANITIDINE [Concomitant]
     Indication: DYSPEPSIA
     Dosage: 150 MG, AS NEEDED
     Route: 048
  4. VITAMIN TAB [Concomitant]
     Dosage: UNK
  5. REVATIO [Suspect]
     Indication: PULMONARY ARTERIAL HYPERTENSION
     Dosage: UNK
     Dates: start: 20110101
  6. PREDNISONE [Suspect]
     Dosage: UNK
  7. DILTIAZEM HYDROCHLORIDE [Suspect]
     Dosage: UNK
  8. PRIMIDONE [Concomitant]
     Indication: PAIN
     Dosage: UNK, AS NEEDED
  9. REVATIO [Suspect]
     Dosage: 20 MG, 3X/DAY
     Route: 048
     Dates: start: 20110101

REACTIONS (6)
  - HAEMORRHOIDS [None]
  - ERYTHEMA [None]
  - PRURITUS [None]
  - DRUG INEFFECTIVE [None]
  - RASH MACULAR [None]
  - FATIGUE [None]
